FAERS Safety Report 6709933-4 (Version None)
Quarter: 2010Q2

REPORT INFORMATION
  Report Type: 
  Country: None (occurrence: None)
  Receive Date: 20100503
  Receipt Date: 20100503
  Transmission Date: 20101027
  Serious: Yes (Other)
  Sender: FDA-Public Use
  Company Number: None

PATIENT
  Age: 2 Year
  Sex: Female
  Weight: 14.9687 kg

DRUGS (4)
  1. CHILDREN'S ZYRTEC ALLERGY [Suspect]
     Indication: ECZEMA
     Dosage: 5MG ONCE DAILY PO
     Route: 048
     Dates: start: 20100401, end: 20100429
  2. CHILDREN'S ZYRTEC ALLERGY [Suspect]
     Indication: MULTIPLE ALLERGIES
     Dosage: 5MG ONCE DAILY PO
     Route: 048
     Dates: start: 20100401, end: 20100429
  3. CHILDREN'S BENADRYL ALLERGY [Suspect]
     Indication: ECZEMA
     Dosage: 12.5 MG EVERY 4-6 HOURS PO
     Route: 048
     Dates: start: 20100401, end: 20100501
  4. CHILDREN'S BENADRYL ALLERGY [Suspect]
     Indication: MULTIPLE ALLERGIES
     Dosage: 12.5 MG EVERY 4-6 HOURS PO
     Route: 048
     Dates: start: 20100401, end: 20100501

REACTIONS (1)
  - RASH ERYTHEMATOUS [None]
